FAERS Safety Report 20798087 (Version 1)
Quarter: 2022Q2

REPORT INFORMATION
  Report Type: Report from Study
  Country: CA (occurrence: CA)
  Receive Date: 20220507
  Receipt Date: 20220507
  Transmission Date: 20220721
  Serious: Yes (Other)
  Sender: FDA-Public Use
  Company Number: CA-ABBVIE-22K-028-4380126-00

PATIENT
  Age: 63 Year
  Sex: Female

DRUGS (1)
  1. RINVOQ [Suspect]
     Active Substance: UPADACITINIB
     Indication: Rheumatoid arthritis
     Route: 048
     Dates: start: 20210925

REACTIONS (2)
  - Foot operation [Unknown]
  - Cardiac disorder [Unknown]

NARRATIVE: CASE EVENT DATE: 20220501
